FAERS Safety Report 6178692-9 (Version None)
Quarter: 2009Q2

REPORT INFORMATION
  Report Type: 
  Country: None (occurrence: None)
  Receive Date: 20090430
  Receipt Date: 20090424
  Transmission Date: 20091009
  Serious: Yes (Death, Other)
  Sender: FDA-Public Use
  Company Number: 2009US001282

PATIENT
  Age: 62 Year
  Sex: Male

DRUGS (2)
  1. PROGRAF [Suspect]
     Indication: LIVER TRANSPLANT
  2. CORTICOSTEROIDS [Concomitant]

REACTIONS (19)
  - ABDOMINAL SEPSIS [None]
  - ACUTE RESPIRATORY DISTRESS SYNDROME [None]
  - ASCITES [None]
  - BACTERIA BODY FLUID IDENTIFIED [None]
  - CANDIDIASIS [None]
  - CHOLESTASIS [None]
  - FUNGUS BODY FLUID IDENTIFIED [None]
  - INFLAMMATION [None]
  - MALNUTRITION [None]
  - NAUSEA [None]
  - PERITONEAL INFECTION [None]
  - PERITONITIS BACTERIAL [None]
  - PERITONITIS SCLEROSING [None]
  - PLEURAL EFFUSION [None]
  - SMALL INTESTINAL OBSTRUCTION [None]
  - SMALL INTESTINAL PERFORATION [None]
  - STAPHYLOCOCCAL INFECTION [None]
  - STREPTOCOCCAL INFECTION [None]
  - VOMITING [None]
